FAERS Safety Report 4784574-7 (Version None)
Quarter: 2005Q3

REPORT INFORMATION
  Report Type: 
  Country: None (occurrence: None)
  Receive Date: 20050929
  Receipt Date: 20050929
  Transmission Date: 20060218
  Serious: Yes (Other)
  Sender: FDA-Public Use
  Company Number: None

PATIENT
  Age: 36 Year
  Sex: Male
  Weight: 74.8 kg

DRUGS (2)
  1. TEQUIN [Suspect]
     Indication: INFECTION
     Dosage: 400MG,400MG QD,ORAL
     Route: 048
  2. IBUPROFEN [Suspect]
     Dosage: 3200MG, 800MG QI, ORAL
     Route: 048

REACTIONS (1)
  - URTICARIA [None]
